FAERS Safety Report 7914525-5 (Version None)
Quarter: 2011Q4

REPORT INFORMATION
  Report Type: 
  Country: None (occurrence: None)
  Receive Date: 20111115
  Receipt Date: 20111103
  Transmission Date: 20120403
  Serious: Yes (Hospitalization)
  Sender: FDA-Public Use
  Company Number: PHHY2011DE098017

PATIENT
  Age: 69 Year
  Sex: Female

DRUGS (3)
  1. RESTEX [Concomitant]
     Dosage: UNK UKN, UNK
  2. CYCLOSPORINE [Suspect]
     Indication: PROPHYLAXIS AGAINST TRANSPLANT REJECTION
     Route: 048
  3. DOPADURA [Concomitant]
     Dosage: UNK UKN, UNK

REACTIONS (1)
  - POLYNEUROPATHY [None]
